FAERS Safety Report 15531466 (Version 1)
Quarter: 2018Q4

REPORT INFORMATION
  Report Type: Spontaneous
  Country: IT (occurrence: IT)
  Receive Date: 20181019
  Receipt Date: 20181019
  Transmission Date: 20190205
  Serious: Yes (Death)
  Sender: FDA-Public Use
  Company Number: IT-009507513-1810ITA006974

PATIENT
  Age: 71 Year
  Sex: Male
  Weight: 70 kg

DRUGS (1)
  1. PEMBROLIZUMAB. [Suspect]
     Active Substance: PEMBROLIZUMAB
     Indication: METASTATIC MALIGNANT MELANOMA
     Dosage: 140MG, CYCLICAL
     Route: 041
     Dates: start: 20180907, end: 20180907

REACTIONS (3)
  - Dyspnoea [Fatal]
  - Chills [Fatal]
  - Arthralgia [Fatal]

NARRATIVE: CASE EVENT DATE: 20180927
